FAERS Safety Report 17728064 (Version 1)
Quarter: 2020Q2

REPORT INFORMATION
  Report Type: Spontaneous
  Country: US (occurrence: US)
  Receive Date: 20200430
  Receipt Date: 20200430
  Transmission Date: 20200714
  Serious: Yes (Other)
  Sender: FDA-Public Use
  Company Number: US-BAYER-2020-069050

PATIENT
  Sex: Female

DRUGS (1)
  1. MIRALAX [Suspect]
     Active Substance: POLYETHYLENE GLYCOL 3350
     Dosage: HALF CAP
     Route: 048

REACTIONS (7)
  - Faeces hard [Unknown]
  - Abdominal pain upper [Unknown]
  - Chest pain [Unknown]
  - Nausea [Unknown]
  - Faeces discoloured [Unknown]
  - Intestinal haemorrhage [Unknown]
  - Incorrect dose administered [Unknown]
